FAERS Safety Report 20119160 (Version 5)
Quarter: 2023Q4

REPORT INFORMATION
  Report Type: Report from Study
  Country: US (occurrence: US)
  Receive Date: 20211126
  Receipt Date: 20231025
  Transmission Date: 20240110
  Serious: Yes (Hospitalization, Other)
  Sender: FDA-Public Use
  Company Number: US-GW PHARMA-202111USGW05783

PATIENT
  Sex: Male

DRUGS (3)
  1. EPIDIOLEX [Suspect]
     Active Substance: CANNABIDIOL
     Indication: Partial seizures
     Dosage: 500 MG, UNK (DOSE CHANGED TO 750 MG, BID)
     Route: 048
     Dates: start: 202107
  2. EPIDIOLEX [Suspect]
     Active Substance: CANNABIDIOL
     Indication: Epilepsy
     Dosage: 15 MILLILITER
     Route: 048
     Dates: start: 20211130
  3. EPIDIOLEX [Suspect]
     Active Substance: CANNABIDIOL
     Indication: Focal dyscognitive seizures
     Dosage: 10 MILLILITER, BID
     Route: 048
     Dates: start: 202107

REACTIONS (6)
  - Hospitalisation [Unknown]
  - Seizure [Unknown]
  - Seizure [Unknown]
  - Emergency care [Unknown]
  - Emergency care [Unknown]
  - Off label use [Unknown]

NARRATIVE: CASE EVENT DATE: 20210101
